FAERS Safety Report 24268744 (Version 1)
Quarter: 2024Q3

REPORT INFORMATION
  Report Type: Spontaneous
  Country: DE (occurrence: DE)
  Receive Date: 20240830
  Receipt Date: 20240830
  Transmission Date: 20241017
  Serious: Yes (Hospitalization)
  Sender: PFIZER
  Company Number: DE-SAMSUNG BIOEPIS-SB-2024-25429

PATIENT
  Sex: Male
  Weight: 70 kg

DRUGS (7)
  1. TRASTUZUMAB [Suspect]
     Active Substance: TRASTUZUMAB
     Indication: Adenocarcinoma gastric
     Dosage: D1 8MG/KG IV
     Route: 042
     Dates: start: 20240417
  2. TRASTUZUMAB [Suspect]
     Active Substance: TRASTUZUMAB
     Dosage: 6 MG/KG, IV, D22 AND D43 PRE- AND POST OP. DOSE GIVEN BEFORE ONSET OF EVENT WAS 439 MG
     Route: 042
     Dates: start: 20240417
  3. LEUCOVORIN [Suspect]
     Active Substance: LEUCOVORIN\LEUCOVORIN CALCIUM
     Indication: Adenocarcinoma gastric
     Dosage: 200 MG/M2, IV, D1/D15/D29 AND D43 PRE- AND POST OP. DOSE GIVEN BEFORE EVENT ONSET WAS 375 MG
     Route: 042
     Dates: start: 20240418
  4. PEMBROLIZUMAB [Suspect]
     Active Substance: PEMBROLIZUMAB
     Indication: Adenocarcinoma gastric
     Dosage: 200 MG FLAT DOSE, IV, D1/D22/D43 PRE- AND POST OP, AFTERWARDS D1Q3
     Route: 042
     Dates: start: 20240417
  5. OXALIPLATIN [Suspect]
     Active Substance: OXALIPLATIN
     Indication: Adenocarcinoma gastric
     Dosage: 85 MG/M2, IV, D1/D15/D29 AND D43 PRE- AND POST OP. DOSE GIVEN BEFORE ONSET OF EVENT WAS 160 MG
     Route: 042
     Dates: start: 20240418
  6. FLUOROURACIL [Suspect]
     Active Substance: FLUOROURACIL
     Indication: Adenocarcinoma gastric
     Dosage: 2600 MG/M2, IV, D1/D15/D29 AND D43 PRE- AND POST OP. DOSE GIVEN BEFORE EVENT ONSET WAS 4850 MG;
     Route: 042
     Dates: start: 20240418
  7. DOCETAXEL [Suspect]
     Active Substance: DOCETAXEL\DOCETAXEL ANHYDROUS
     Indication: Adenocarcinoma gastric
     Dosage: 50 MG/M2, IV, D1/D15/D29 AND D43 PRE- AND POST OP. DOSE GIVEN BEFORE EVENT ONSET WAS 94 MG
     Route: 042
     Dates: start: 20240418

REACTIONS (2)
  - Ventricular extrasystoles [Recovered/Resolved]
  - Off label use [Unknown]

NARRATIVE: CASE EVENT DATE: 20240708
